FAERS Safety Report 21042629 (Version 1)
Quarter: 2022Q3

REPORT INFORMATION
  Report Type: Spontaneous
  Country: US (occurrence: US)
  Receive Date: 20220705
  Receipt Date: 20220705
  Transmission Date: 20221026
  Serious: No
  Sender: FDA-Public Use
  Company Number: US-JNJFOC-20220704814

PATIENT
  Age: 36 Year
  Sex: Male

DRUGS (1)
  1. TYLENOL 8 HR ARTHRITIS PAIN [Suspect]
     Active Substance: ACETAMINOPHEN
     Indication: Osteoarthritis
     Dosage: 2 CAPLETS. TWICE DAILY.
     Route: 065
     Dates: start: 20220601

REACTIONS (2)
  - Pain in extremity [Recovering/Resolving]
  - Inappropriate schedule of product administration [Unknown]

NARRATIVE: CASE EVENT DATE: 20220601
